FAERS Safety Report 10838810 (Version 3)
Quarter: 2015Q1

REPORT INFORMATION
  Report Type: Spontaneous
  Country: US (occurrence: None)
  Receive Date: 20150218
  Receipt Date: 20150325
  Transmission Date: 20150721
  Serious: Yes (Hospitalization, Other)
  Sender: FDA-Public Use
  Company Number: ADR-2015-00313

PATIENT
  Age: 45 Year
  Sex: Female

DRUGS (11)
  1. KEPPRA [Suspect]
     Active Substance: LEVETIRACETAM
  2. LIORESAL [Suspect]
     Active Substance: BACLOFEN
     Indication: MUSCLE SPASTICITY
     Dates: start: 20100518
  3. CLONAZEPAM. [Suspect]
     Active Substance: CLONAZEPAM
  4. TRAZODONE [Suspect]
     Active Substance: TRAZODONE HYDROCHLORIDE
  5. TRETINOIN 0.025% TOPICAL CREAM [Suspect]
     Active Substance: TRETINOIN
     Indication: MUSCLE SPASTICITY
     Route: 061
     Dates: start: 20150204
  6. METOPROLOL [Suspect]
     Active Substance: METOPROLOL
  7. VERAPAMIL [Suspect]
     Active Substance: VERAPAMIL HYDROCHLORIDE
  8. AMIODARONE [Suspect]
     Active Substance: AMIODARONE
  9. BACLOFEN. [Suspect]
     Active Substance: BACLOFEN
  10. DOCUSATE [Suspect]
     Active Substance: DOCUSATE
     Dosage: 10 MG/DAY PM RECTALLY
     Route: 054
  11. TYLENOL [Suspect]
     Active Substance: ACETAMINOPHEN

REACTIONS (11)
  - Muscle spasticity [None]
  - Pyrexia [None]
  - Condition aggravated [None]
  - Device failure [None]
  - Nephrolithiasis [None]
  - Hypertonia [None]
  - Flushing [None]
  - Agitation [None]
  - Hyperhidrosis [None]
  - Device power source issue [None]
  - Urinary tract infection [None]

NARRATIVE: CASE EVENT DATE: 20150128
